FAERS Safety Report 25051246 (Version 1)
Quarter: 2025Q1

REPORT INFORMATION
  Report Type: Spontaneous
  Country: US (occurrence: US)
  Receive Date: 20250307
  Receipt Date: 20250307
  Transmission Date: 20250409
  Serious: No
  Sender: CALLIDITAS THERAPEUTICS AB
  Company Number: US-Calliditas-2024CAL01938

PATIENT
  Age: 73 Year
  Sex: Male
  Weight: 87.3 kg

DRUGS (2)
  1. TARPEYO [Suspect]
     Active Substance: BUDESONIDE
     Indication: IgA nephropathy
     Route: 048
     Dates: start: 20231114
  2. TARPEYO [Suspect]
     Active Substance: BUDESONIDE
     Indication: IgA nephropathy
     Route: 048
     Dates: start: 2025

REACTIONS (11)
  - Pancreatic cyst [Unknown]
  - Fall [Unknown]
  - Back injury [Unknown]
  - Muscular weakness [Unknown]
  - Asthenia [Unknown]
  - Constipation [Unknown]
  - Skin atrophy [Unknown]
  - Sensitive skin [Unknown]
  - Increased tendency to bruise [Unknown]
  - Insomnia [Unknown]
  - Confusional state [Unknown]
